FAERS Safety Report 5401968-7 (Version None)
Quarter: 2007Q3

REPORT INFORMATION
  Report Type: 
  Country: None (occurrence: None)
  Receive Date: 20070727
  Receipt Date: 20070723
  Transmission Date: 20080115
  Serious: Yes (Hospitalization)
  Sender: FDA-Public Use
  Company Number: 2007SP014711

PATIENT
  Age: 26 Year
  Sex: Female

DRUGS (3)
  1. TEMOZOLOMIDE [Suspect]
     Indication: GLIOMA
     Dosage: 600 MG/M2;QD;PO
     Route: 048
     Dates: start: 20070705, end: 20070709
  2. NEXIUM [Concomitant]
  3. MEDROL [Concomitant]

REACTIONS (6)
  - COMA [None]
  - CONFUSIONAL STATE [None]
  - CONVULSION [None]
  - FEBRILE BONE MARROW APLASIA [None]
  - MIOSIS [None]
  - THROMBOCYTOPENIA [None]
